FAERS Safety Report 13839612 (Version 1)
Quarter: 2017Q3

REPORT INFORMATION
  Report Type: Spontaneous
  Country: US (occurrence: US)
  Receive Date: 20170805
  Receipt Date: 20170805
  Transmission Date: 20171127
  Serious: No
  Sender: FDA-Public Use
  Company Number: None

PATIENT
  Age: 55 Year
  Sex: Female

DRUGS (16)
  1. ERGOCALCIFEROL. [Concomitant]
     Active Substance: ERGOCALCIFEROL
  2. METFORMIN [Concomitant]
     Active Substance: METFORMIN HYDROCHLORIDE
  3. ALBUTEROL. [Concomitant]
     Active Substance: ALBUTEROL
  4. FAMOTIDINE. [Concomitant]
     Active Substance: FAMOTIDINE
  5. FUROSEMIDE. [Concomitant]
     Active Substance: FUROSEMIDE
  6. SALMETEROL [Concomitant]
     Active Substance: SALMETEROL
  7. CARVEDILOL. [Concomitant]
     Active Substance: CARVEDILOL
  8. DOCUSATE [Concomitant]
     Active Substance: DOCUSATE
  9. FLUTICASONE. [Concomitant]
     Active Substance: FLUTICASONE
  10. ASPIRIN. [Concomitant]
     Active Substance: ASPIRIN
  11. GABAPENTIN. [Concomitant]
     Active Substance: GABAPENTIN
  12. HYDROMORPHONE [Concomitant]
     Active Substance: HYDROMORPHONE
  13. TRAZODONE [Concomitant]
     Active Substance: TRAZODONE HYDROCHLORIDE
  14. DULOXETINE. [Suspect]
     Active Substance: DULOXETINE
     Indication: PRODUCT USED FOR UNKNOWN INDICATION
     Route: 048
     Dates: end: 20160701
  15. LOSARTAN. [Concomitant]
     Active Substance: LOSARTAN
  16. NAPROXEN. [Concomitant]
     Active Substance: NAPROXEN

REACTIONS (3)
  - Pruritus [None]
  - Urticaria [None]
  - Rash [None]

NARRATIVE: CASE EVENT DATE: 20160701
